FAERS Safety Report 18736250 (Version 1)
Quarter: 2021Q1

REPORT INFORMATION
  Report Type: Spontaneous
  Country: FR (occurrence: FR)
  Receive Date: 20210113
  Receipt Date: 20210113
  Transmission Date: 20210419
  Serious: Yes (Life-Threatening)
  Sender: FDA-Public Use
  Company Number: FR-PFIZER INC-2021016060

PATIENT
  Age: 63 Year
  Sex: Male
  Weight: 95 kg

DRUGS (8)
  1. LIDOCAINE. [Suspect]
     Active Substance: LIDOCAINE
     Indication: NERVE BLOCK
     Route: 042
     Dates: start: 20200911, end: 20200911
  2. CEFUROXIME. [Suspect]
     Active Substance: CEFUROXIME
     Indication: ANTIBIOTIC PROPHYLAXIS
     Dosage: 1.5 G, SINGLE
     Route: 040
     Dates: start: 20200911, end: 20200911
  3. SUFENTANIL [Suspect]
     Active Substance: SUFENTANIL
     Indication: GENERAL ANAESTHESIA
     Route: 042
     Dates: start: 20200911, end: 20200911
  4. MIDAZOLAM. [Suspect]
     Active Substance: MIDAZOLAM
     Indication: GENERAL ANAESTHESIA
     Route: 042
     Dates: start: 20200911, end: 20200911
  5. PROPOFOL. [Suspect]
     Active Substance: PROPOFOL
     Indication: GENERAL ANAESTHESIA
     Route: 042
     Dates: start: 20200911, end: 20200911
  6. CISATRACURIUM BESILATE [Suspect]
     Active Substance: CISATRACURIUM BESYLATE
     Dosage: UNK
  7. ATROPINE. [Suspect]
     Active Substance: ATROPINE
     Route: 040
     Dates: start: 20200911, end: 20200911
  8. NEOSTIGMINE METHYLSULFATE. [Suspect]
     Active Substance: NEOSTIGMINE METHYLSULFATE
     Indication: NEUROMUSCULAR BLOCKADE REVERSAL
     Dosage: 4 MG, SINGLE
     Route: 042
     Dates: start: 20200911, end: 20200911

REACTIONS (4)
  - Hypertension [Recovered/Resolved]
  - Cardiac arrest [Recovered/Resolved]
  - Acute pulmonary oedema [Recovered/Resolved]
  - Tachycardia [Recovered/Resolved]

NARRATIVE: CASE EVENT DATE: 20200911
